FAERS Safety Report 20486986 (Version 1)
Quarter: 2022Q1

REPORT INFORMATION
  Report Type: Spontaneous
  Country: US (occurrence: US)
  Receive Date: 20220217
  Receipt Date: 20220217
  Transmission Date: 20220424
  Serious: Yes (Other)
  Sender: FDA-Public Use
  Company Number: US-Fresenius Medical Care Renal Therapies Group-FMC-2202-000224

PATIENT
  Age: 69 Year
  Sex: Female
  Weight: 117 kg

DRUGS (1)
  1. DELFLEX WITH DEXTROSE 2.5% LOW MAGNESIUM LOW CALCIUM [Suspect]
     Active Substance: CALCIUM CHLORIDE\DEXTROSE\MAGNESIUM CHLORIDE\SODIUM CHLORIDE\SODIUM LACTATE
     Indication: End stage renal disease
     Dosage: 4 EXCHANGES WITH 2,300ML FILL VOLUME, 2 HOUR DWELL TIME, LAST FILL OF 1,500ML, NO DAYTIME EXCHANGE.
     Route: 033

REACTIONS (3)
  - Peritonitis [Unknown]
  - Peritonitis bacterial [Recovered/Resolved]
  - Hypervolaemia [Recovered/Resolved]

NARRATIVE: CASE EVENT DATE: 20220202
